FAERS Safety Report 4472592-8 (Version None)
Quarter: 2004Q4

REPORT INFORMATION
  Report Type: 
  Country: None (occurrence: None)
  Receive Date: 20041008
  Receipt Date: 20040927
  Transmission Date: 20050328
  Serious: Yes (Disabling)
  Sender: FDA-Public Use
  Company Number: 2004067502

PATIENT
  Age: 78 Year
  Sex: Female
  Weight: 70 kg

DRUGS (7)
  1. LIPITOR [Suspect]
     Indication: BLOOD CHOLESTEROL INCREASED
     Dosage: 10 MG (10 MG, 1 IN 1 D), ORAL
     Route: 048
     Dates: start: 20040613, end: 20040830
  2. FLUTICASONE PROPIONATE [Concomitant]
  3. ASPIRIN [Concomitant]
  4. SALBUTAMOL (SALBUTAMOL) [Concomitant]
  5. FORMOTEROL (FORMOTEROL) [Concomitant]
  6. GAVISCON (SOIDUM ALGINATE, SODIUM BICARBONATE) [Concomitant]
  7. FELODIPINE [Concomitant]

REACTIONS (2)
  - MYALGIA [None]
  - OSTEOARTHRITIS [None]
